FAERS Safety Report 17200420 (Version 1)
Quarter: 2019Q4

REPORT INFORMATION
  Report Type: Report from Study
  Country: DE (occurrence: DE)
  Receive Date: 20191226
  Receipt Date: 20191226
  Transmission Date: 20200122
  Serious: Yes (Other)
  Sender: FDA-Public Use
  Company Number: DE-ROCHE-2497785

PATIENT
  Age: 76 Year
  Sex: Male

DRUGS (39)
  1. RITUXIMAB. [Suspect]
     Active Substance: RITUXIMAB
     Dosage: 754 MG, UNK
     Route: 041
     Dates: start: 20181016, end: 20181016
  2. VINCRISTINE [Suspect]
     Active Substance: VINCRISTINE
     Dosage: 1 MG, UNK
     Route: 041
     Dates: start: 20180725, end: 20180725
  3. PREDNISOLUT [PREDNISOLONE HEMISUCCINATE] [Concomitant]
     Indication: PROPHYLAXIS
     Dosage: UNK
     Route: 042
     Dates: start: 20180703, end: 20181016
  4. NOVAMINSULFON [Concomitant]
     Active Substance: METAMIZOLE
     Indication: POLYNEUROPATHY
     Route: 048
  5. CYCLOPHOSPHAMIDE. [Suspect]
     Active Substance: CYCLOPHOSPHAMIDE
     Dosage: 1508 MG, UNK
     Route: 041
     Dates: start: 20180725, end: 20180725
  6. CYCLOPHOSPHAMIDE. [Suspect]
     Active Substance: CYCLOPHOSPHAMIDE
     Dosage: 750 MG, UNK
     Route: 041
     Dates: start: 20180815, end: 20180815
  7. ASPIRIN. [Concomitant]
     Active Substance: ASPIRIN
     Indication: PERIPHERAL ARTERIAL OCCLUSIVE DISEASE
     Route: 048
  8. RITUXIMAB. [Suspect]
     Active Substance: RITUXIMAB
     Indication: DIFFUSE LARGE B-CELL LYMPHOMA
     Dosage: 754 MG, UNK
     Route: 041
     Dates: start: 20180703, end: 20180703
  9. RITUXIMAB. [Suspect]
     Active Substance: RITUXIMAB
     Dosage: 754 MG, UNK
     Route: 041
     Dates: start: 20180925, end: 20180925
  10. DOXORUBICIN [Suspect]
     Active Substance: DOXORUBICIN
     Indication: DIFFUSE LARGE B-CELL LYMPHOMA
     Dosage: 50 MG, UNK
     Route: 041
     Dates: start: 20180905, end: 20180905
  11. PREDNISONE. [Suspect]
     Active Substance: PREDNISONE
     Dosage: 300 MG, UNK
     Route: 048
     Dates: start: 20180926, end: 20180930
  12. PREDNISONE. [Suspect]
     Active Substance: PREDNISONE
     Dosage: 300 MG, UNK
     Route: 048
     Dates: start: 20180725, end: 20180727
  13. PREDNISONE. [Suspect]
     Active Substance: PREDNISONE
     Dosage: 500 MG, UNK
     Route: 048
     Dates: start: 20180704, end: 20180708
  14. ATORVASTATIN [Concomitant]
     Active Substance: ATORVASTATIN
     Indication: HYPERLIPIDAEMIA
     Route: 048
  15. RITUXIMAB. [Suspect]
     Active Substance: RITUXIMAB
     Dosage: 754 MG, UNK
     Route: 041
     Dates: start: 20180904, end: 20180904
  16. CYCLOPHOSPHAMIDE. [Suspect]
     Active Substance: CYCLOPHOSPHAMIDE
     Dosage: 1508 MG, UNK
     Route: 041
     Dates: start: 20180704, end: 20180704
  17. DOXORUBICIN [Suspect]
     Active Substance: DOXORUBICIN
     Dosage: 100.5 MG, UNK
     Route: 041
     Dates: start: 20180704, end: 20180704
  18. MESNA. [Concomitant]
     Active Substance: MESNA
     Indication: PROPHYLAXIS
     Dosage: UNK
     Route: 048
     Dates: start: 20180704, end: 20180926
  19. PARACETAMOL [Concomitant]
     Active Substance: ACETAMINOPHEN
     Indication: PROPHYLAXIS
     Dosage: UNK
     Route: 047
     Dates: start: 20180703, end: 20181016
  20. HIDROCLOROTIAZIDE [Concomitant]
     Active Substance: HYDROCHLOROTHIAZIDE
     Indication: HYPERTENSION
     Route: 048
  21. RITUXIMAB. [Suspect]
     Active Substance: RITUXIMAB
     Dosage: 754 MG, UNK
     Route: 041
     Dates: start: 20180724, end: 20180724
  22. DOXORUBICIN [Suspect]
     Active Substance: DOXORUBICIN
     Dosage: 50 MG, UNK
     Route: 041
     Dates: start: 20180926, end: 20180926
  23. PREDNISONE. [Suspect]
     Active Substance: PREDNISONE
     Dosage: 300 MG, UNK
     Route: 048
     Dates: start: 20180815, end: 20180817
  24. PANTOZOLE [Concomitant]
     Active Substance: PANTOPRAZOLE SODIUM
     Indication: PROPHYLAXIS
     Route: 048
  25. SPIRONOLACTONE. [Concomitant]
     Active Substance: SPIRONOLACTONE
     Indication: CHRONIC OBSTRUCTIVE PULMONARY DISEASE
     Route: 048
  26. VINCRISTINE [Suspect]
     Active Substance: VINCRISTINE
     Indication: DIFFUSE LARGE B-CELL LYMPHOMA
     Dosage: 1 MG, UNK
     Route: 041
     Dates: start: 20180629, end: 20180629
  27. TILIDINE [Concomitant]
     Active Substance: TILIDINE
     Indication: POLYNEUROPATHY
     Route: 048
  28. TORASEMIDE [Concomitant]
     Active Substance: TORSEMIDE
     Indication: HYPERTENSION
     Route: 048
  29. DIMETINDENE [Concomitant]
     Active Substance: DIMETHINDENE
     Indication: PROPHYLAXIS
     Dosage: UNK
     Route: 042
     Dates: start: 20180703, end: 20181016
  30. RITUXIMAB. [Suspect]
     Active Substance: RITUXIMAB
     Dosage: 754 MG, UNK
     Route: 041
     Dates: start: 20180814, end: 20180814
  31. CYCLOPHOSPHAMIDE. [Suspect]
     Active Substance: CYCLOPHOSPHAMIDE
     Indication: DIFFUSE LARGE B-CELL LYMPHOMA
     Dosage: 750 MG, UNK
     Route: 041
     Dates: start: 20180905, end: 20180905
  32. CYCLOPHOSPHAMIDE. [Suspect]
     Active Substance: CYCLOPHOSPHAMIDE
     Dosage: 750 MG, UNK
     Route: 041
     Dates: start: 20180926, end: 20180926
  33. PREDNISONE. [Suspect]
     Active Substance: PREDNISONE
     Indication: DIFFUSE LARGE B-CELL LYMPHOMA
     Dosage: 300 MG, UNK
     Route: 048
     Dates: start: 20180905, end: 20180907
  34. PALONOSETRON. [Concomitant]
     Active Substance: PALONOSETRON HYDROCHLORIDE
     Indication: PROPHYLAXIS
     Dosage: UNK
     Route: 042
     Dates: start: 20180704, end: 20180926
  35. DOXORUBICIN [Suspect]
     Active Substance: DOXORUBICIN
     Dosage: 100.5 MG, UNK
     Route: 041
     Dates: start: 20180725, end: 20180725
  36. DOXORUBICIN [Suspect]
     Active Substance: DOXORUBICIN
     Dosage: 50 MG, UNK
     Route: 041
     Dates: start: 20180815, end: 20180815
  37. RANITIDINE. [Concomitant]
     Active Substance: RANITIDINE
     Indication: PROPHYLAXIS
     Dosage: UNK
     Route: 042
     Dates: start: 20180703, end: 20181016
  38. VOCADO [Concomitant]
     Active Substance: AMLODIPINE BESYLATE\OLMESARTAN MEDOXOMIL
     Indication: HYPERTENSION
     Route: 048
  39. LONQUEX [Concomitant]
     Active Substance: LIPEGFILGRASTIM
     Indication: PROPHYLAXIS
     Dosage: UNK
     Route: 058
     Dates: start: 20180706, end: 20180927

REACTIONS (7)
  - Oral candidiasis [Recovered/Resolved]
  - Urinary tract infection [Recovered/Resolved]
  - Nasopharyngitis [Recovered/Resolved]
  - Anaemia [Recovered/Resolved]
  - Fatigue [Recovered/Resolved]
  - Oedema peripheral [Recovered/Resolved]
  - Polyneuropathy [Recovered/Resolved]

NARRATIVE: CASE EVENT DATE: 20180725
